FAERS Safety Report 11113326 (Version 2)
Quarter: 2015Q2

REPORT INFORMATION
  Report Type: Spontaneous
  Country: US (occurrence: US)
  Receive Date: 20150514
  Receipt Date: 20150601
  Transmission Date: 20150821
  Serious: No
  Sender: FDA-Public Use
  Company Number: US-ROXANE LABORATORIES, INC.-2015-RO-00811RO

PATIENT
  Age: 83 Year
  Sex: Female
  Weight: 68 kg

DRUGS (1)
  1. FLUTICASONE [Suspect]
     Active Substance: FLUTICASONE\FLUTICASONE PROPIONATE
     Indication: SINUS HEADACHE
     Route: 045
     Dates: start: 201505, end: 20150503

REACTIONS (1)
  - Sinus headache [Recovered/Resolved]

NARRATIVE: CASE EVENT DATE: 20150503
